FAERS Safety Report 7239982-1 (Version None)
Quarter: 2011Q1

REPORT INFORMATION
  Report Type: 
  Country: None (occurrence: None)
  Receive Date: 20110124
  Receipt Date: 20110114
  Transmission Date: 20110831
  Serious: Yes (Other)
  Sender: FDA-Public Use
  Company Number: US-BIOGENIDEC-2011BI001939

PATIENT
  Sex: Female

DRUGS (3)
  1. COPAXONE [Concomitant]
     Indication: MULTIPLE SCLEROSIS
  2. AVONEX [Suspect]
     Indication: MULTIPLE SCLEROSIS
     Route: 030
     Dates: start: 20060601, end: 20070201
  3. REBIF [Concomitant]
     Indication: MULTIPLE SCLEROSIS

REACTIONS (5)
  - FALL [None]
  - RIB FRACTURE [None]
  - FOOT FRACTURE [None]
  - PYREXIA [None]
  - ANKLE FRACTURE [None]
